FAERS Safety Report 17441667 (Version 18)
Quarter: 2020Q4

REPORT INFORMATION
  Report Type: Spontaneous
  Country: US (occurrence: US)
  Receive Date: 20200220
  Receipt Date: 20201008
  Transmission Date: 20210113
  Serious: Yes (Other)
  Sender: FDA-Public Use
  Company Number: US-PFIZER INC-2020076841

PATIENT
  Age: 27 Year
  Sex: Male

DRUGS (46)
  1. DILANTIN [Suspect]
     Active Substance: PHENYTOIN
     Dosage: 100 MG, 2X/DAY
     Route: 048
     Dates: end: 20121228
  2. DILANTIN [Suspect]
     Active Substance: PHENYTOIN
     Dosage: 100 MG, DAILY (EVERY MORNING)
     Route: 048
     Dates: start: 20170216, end: 20170328
  3. DILANTIN [Suspect]
     Active Substance: PHENYTOIN
     Dosage: 50 MG, NIGHTLY
     Route: 048
     Dates: end: 20180102
  4. DEPAKOTE ER [Concomitant]
     Active Substance: DIVALPROEX SODIUM
     Dosage: 3 DF (1500 MG), 2X/DAY
     Route: 048
     Dates: start: 20140827, end: 20140912
  5. LAMICTAL [Concomitant]
     Active Substance: LAMOTRIGINE
     Dosage: 350 MG, 1X/DAY (EVERY EVENING)
     Route: 048
  6. KLONOPIN [Concomitant]
     Active Substance: CLONAZEPAM
     Indication: ANXIETY
     Dosage: 0.5 MG, 2X/DAY
     Route: 048
     Dates: start: 20170405, end: 20180912
  7. SEROQUEL [Concomitant]
     Active Substance: QUETIAPINE FUMARATE
     Dosage: UNK
  8. DILANTIN [Suspect]
     Active Substance: PHENYTOIN
     Indication: SEIZURE
     Dosage: UNK
     Route: 048
     Dates: start: 2012
  9. DILANTIN [Suspect]
     Active Substance: PHENYTOIN
     Dosage: 350 MG, DAILY
  10. PHENYTOIN SODIUM. [Suspect]
     Active Substance: PHENYTOIN SODIUM
     Indication: EPILEPSY
     Dosage: 100 MG, 1X/DAY (1 CAPSULE, AT BEDTIME)
     Route: 048
  11. PHENYTOIN. [Suspect]
     Active Substance: PHENYTOIN
     Indication: PARTIAL SEIZURES
  12. LAMICTAL [Concomitant]
     Active Substance: LAMOTRIGINE
     Dosage: 50 MG, DAILY
     Route: 048
     Dates: end: 20141218
  13. DEPAKOTE [Concomitant]
     Active Substance: DIVALPROEX SODIUM
     Dosage: 1500 MG, 2X/DAY
     Route: 048
  14. TOPROL XL [Concomitant]
     Active Substance: METOPROLOL SUCCINATE
     Indication: HYPERTENSION
     Dosage: 25 MG, 1X/DAY (AT BED TIME)
     Route: 048
     Dates: start: 20170322
  15. DILANTIN [Suspect]
     Active Substance: PHENYTOIN
     Dosage: 225 MG, 1X/DAY (AT BEDTIME)
  16. PHENYTOIN SODIUM. [Suspect]
     Active Substance: PHENYTOIN SODIUM
     Dosage: 350 MG, DAILY
  17. PHENYTOIN. [Suspect]
     Active Substance: PHENYTOIN
     Indication: EPILEPSY
     Dosage: 50 MG, DAILY (EVERY NIGHT AT BEDTIME)
     Route: 048
     Dates: end: 20140625
  18. LAMICTAL XR [Concomitant]
     Active Substance: LAMOTRIGINE
     Dosage: 300 MG, DAILY
     Route: 048
     Dates: end: 20121218
  19. LAMOTRIGINE. [Concomitant]
     Active Substance: LAMOTRIGINE
     Dosage: 100 MG, 1X/DAY (1 TABLET IN EVENING)
     Route: 048
     Dates: start: 20140625, end: 20141219
  20. LIPITOR [Concomitant]
     Active Substance: ATORVASTATIN CALCIUM
     Dosage: 10 MG, 1X/DAY (AT BED TIME)
     Route: 048
     Dates: start: 20170322
  21. DIVALPROEX SODIUM. [Concomitant]
     Active Substance: DIVALPROEX SODIUM
     Dosage: 1500 MG, 2X/DAY
     Route: 048
  22. DILANTIN [Suspect]
     Active Substance: PHENYTOIN
     Dosage: 300 MG, NIGHTLY
     Route: 048
     Dates: end: 20180102
  23. CARNITOR [Concomitant]
     Active Substance: LEVOCARNITINE
     Dosage: 330 MG, 2X/DAY
     Route: 048
     Dates: end: 20140304
  24. LIPITOR [Concomitant]
     Active Substance: ATORVASTATIN CALCIUM
     Indication: HYPERCHOLESTEROLAEMIA
     Dosage: 20 MG
     Route: 048
     Dates: start: 20141024
  25. DILANTIN [Suspect]
     Active Substance: PHENYTOIN
     Dosage: 200 MG, 2X/DAY
     Route: 048
     Dates: end: 20170216
  26. DILANTIN [Suspect]
     Active Substance: PHENYTOIN
     Dosage: 200 MG, DAILY (EVERY EVENING)
     Route: 048
     Dates: start: 20170216, end: 20170328
  27. DILANTIN [Suspect]
     Active Substance: PHENYTOIN
     Indication: EPILEPSY
     Dosage: 50 MG, DAILY
     Route: 048
     Dates: end: 20121228
  28. DILANTIN [Suspect]
     Active Substance: PHENYTOIN
     Dosage: 100 MG, DAILY (EVERY EVENING)
     Route: 048
     Dates: start: 20180315, end: 20190410
  29. DILANTIN [Suspect]
     Active Substance: PHENYTOIN
     Dosage: 50 MG, 1X/DAY (AT BEDTIME)
     Route: 048
     Dates: start: 20170322, end: 20170421
  30. PHENYTOIN SODIUM. [Suspect]
     Active Substance: PHENYTOIN SODIUM
     Indication: PARTIAL SEIZURES
     Dosage: 200 MG, 2X/DAY
     Route: 048
     Dates: end: 20150204
  31. PHENYTOIN SODIUM. [Suspect]
     Active Substance: PHENYTOIN SODIUM
     Dosage: 300 MG, 1X/DAY (1 CAPSULE, AT BEDTIME)
     Route: 048
     Dates: start: 20170322
  32. DEPAKOTE ER [Concomitant]
     Active Substance: DIVALPROEX SODIUM
     Dosage: 250 MG, DAILY
     Route: 048
     Dates: end: 20140304
  33. LACOSAMIDE. [Concomitant]
     Active Substance: LACOSAMIDE
     Dosage: 200 MG, 2X/DAY
     Route: 048
     Dates: end: 20140521
  34. LAMOTRIGINE. [Concomitant]
     Active Substance: LAMOTRIGINE
     Dosage: 250 MG, 2X/DAY
     Route: 048
     Dates: start: 20140627, end: 20141017
  35. RISPERDAL [Concomitant]
     Active Substance: RISPERIDONE
     Indication: PSYCHOTIC DISORDER
     Dosage: 3 MG, 2X/DAY (1 EVERY 12 HOURS)
     Route: 048
     Dates: start: 20170322
  36. CLONAZEPAM. [Concomitant]
     Active Substance: CLONAZEPAM
     Dosage: 0.5 MG, 2X/DAY (1 TABLET BY MOUTH, AS NEEDED)
     Route: 048
  37. RISPERIDONE. [Concomitant]
     Active Substance: RISPERIDONE
     Dosage: 2 MG, 2X/DAY
     Route: 048
  38. LORAZEPAM. [Concomitant]
     Active Substance: LORAZEPAM
     Indication: ANXIETY
     Dosage: 2 MG, AS NEEDED (ONCE PRN)
     Route: 048
     Dates: end: 20150417
  39. KEPPRA [Concomitant]
     Active Substance: LEVETIRACETAM
     Indication: EPILEPSY
     Dosage: 500 MG, 2X/DAY (1 EVERY 12 HOURS)
     Route: 048
     Dates: start: 20170322
  40. KEPPRA [Concomitant]
     Active Substance: LEVETIRACETAM
     Dosage: 750 MG, 2X/DAY (HS)
  41. DILANTIN [Suspect]
     Active Substance: PHENYTOIN
     Dosage: 50 MG, 2X/DAY
     Route: 048
     Dates: end: 20141026
  42. LAMOTRIGINE. [Concomitant]
     Active Substance: LAMOTRIGINE
     Dosage: 300 MG, 1X/DAY (EVERY MORNING)
     Route: 048
  43. DEPAKOTE ER [Concomitant]
     Active Substance: DIVALPROEX SODIUM
     Dosage: 1000 MG, 3X/DAY
     Route: 048
     Dates: end: 20170216
  44. LAMOTRIGINE. [Concomitant]
     Active Substance: LAMOTRIGINE
     Dosage: 25 MG, 1X/DAY
     Route: 048
  45. LAMOTRIGINE. [Concomitant]
     Active Substance: LAMOTRIGINE
     Dosage: 50 MG, 1X/DAY (1 TABLET IN A.M WITH 250MG TABLET)
     Route: 048
     Dates: start: 20140630, end: 20141105
  46. KLONOPIN [Concomitant]
     Active Substance: CLONAZEPAM
     Dosage: 0.5 MG, 2X/DAY (1 EVERY 12 HOURS)
     Route: 048
     Dates: start: 20170322

REACTIONS (7)
  - Speech disorder [Unknown]
  - Amnesia [Unknown]
  - Confusional state [Unknown]
  - Cognitive disorder [Unknown]
  - Cerebellar atrophy [Not Recovered/Not Resolved]
  - Balance disorder [Unknown]
  - Gait disturbance [Unknown]
